FAERS Safety Report 7729273-4 (Version None)
Quarter: 2011Q3

REPORT INFORMATION
  Report Type: 
  Country: None (occurrence: None)
  Receive Date: 20110831
  Receipt Date: 20110831
  Transmission Date: 20111222
  Serious: Yes (Death, Hospitalization)
  Sender: FDA-Public Use
  Company Number: None

PATIENT
  Sex: Female
  Weight: 65.9 kg

DRUGS (2)
  1. CISPLATIN [Suspect]
     Dosage: 130.5 MG
     Dates: end: 20110726
  2. ETOPOSIDE [Suspect]
     Dosage: 522 MG
     Dates: end: 20110728

REACTIONS (7)
  - VOMITING [None]
  - DISORIENTATION [None]
  - CONVULSION [None]
  - HYPERTENSION [None]
  - NUCLEAR MAGNETIC RESONANCE IMAGING ABNORMAL [None]
  - CONSTIPATION [None]
  - APHASIA [None]
